FAERS Safety Report 13381721 (Version 1)
Quarter: 2017Q1

REPORT INFORMATION
  Report Type: Spontaneous
  Country: US (occurrence: US)
  Receive Date: 20170329
  Receipt Date: 20170329
  Transmission Date: 20170429
  Serious: No
  Sender: FDA-Public Use
  Company Number: None

PATIENT

DRUGS (2)
  1. HYDROCODONE BITARTRATE AND ACETAMINOPHEN 10MG/325MG [Suspect]
     Active Substance: ACETAMINOPHEN\HYDROCODONE BITARTRATE
     Dosage: 500 TABLETS
     Route: 048
  2. OXYCODONE AND ACETAMINOPHEN 10MG/325MG [Suspect]
     Active Substance: ACETAMINOPHEN\OXYCODONE HYDROCHLORIDE
     Dosage: 100 TABLETS
     Route: 048

REACTIONS (2)
  - Wrong drug administered [None]
  - Drug dispensing error [None]
